FAERS Safety Report 19638149 (Version 1)
Quarter: 2021Q3

REPORT INFORMATION
  Report Type: Spontaneous
  Country: CN (occurrence: CN)
  Receive Date: 20210730
  Receipt Date: 20210730
  Transmission Date: 20211014
  Serious: Yes (Life-Threatening)
  Sender: FDA-Public Use
  Company Number: CN-BAYER-2021-185229

PATIENT
  Age: 66 Year
  Sex: Female
  Weight: 60 kg

DRUGS (2)
  1. IOPROMIDE. [Suspect]
     Active Substance: IOPROMIDE
     Indication: ANGIOCARDIOGRAM
     Dosage: 55 ML, ONCE
     Route: 042
     Dates: start: 20210727, end: 20210727
  2. IOPROMIDE. [Suspect]
     Active Substance: IOPROMIDE
     Indication: PALPITATIONS

REACTIONS (7)
  - Convulsions local [Recovered/Resolved]
  - Urinary incontinence [Recovered/Resolved]
  - Dysphoria [Recovered/Resolved]
  - Pruritus [Recovered/Resolved]
  - Loss of consciousness [Recovered/Resolved]
  - Trismus [None]
  - Anal incontinence [Recovered/Resolved]

NARRATIVE: CASE EVENT DATE: 20210727
